FAERS Safety Report 8072812-7 (Version None)
Quarter: 2012Q1

REPORT INFORMATION
  Report Type: 
  Country: None (occurrence: None)
  Receive Date: 20120120
  Receipt Date: 20120117
  Transmission Date: 20120608
  Serious: Yes (Life-Threatening, Hospitalization, Other)
  Sender: FDA-Public Use
  Company Number: 2012SP003166

PATIENT
  Age: 31 Year
  Sex: Male
  Weight: 100 kg

DRUGS (8)
  1. FOLIC ACID [Concomitant]
  2. VITAMIN B-12 [Concomitant]
  3. PEGETRON (PEGYLATED INTERFERON ALFA-2B W/RIBAVIRIN) [Suspect]
     Indication: PRODUCT USED FOR UNKNOWN INDICATION
     Dosage: 800 MG;BID;PO, 150 MCG;QW;SC
     Route: 048
  4. PEGETRON (PEGYLATED INTERFERON ALFA-2B W/RIBAVIRIN) [Suspect]
     Indication: PRODUCT USED FOR UNKNOWN INDICATION
     Dosage: 800 MG;BID;PO, 150 MCG;QW;SC
     Route: 048
  5. MULTI-VITAMIN [Concomitant]
  6. IBUPROFEN [Concomitant]
  7. GRAVOL TAB [Concomitant]
  8. MELOXICAM [Concomitant]

REACTIONS (4)
  - DYSPNOEA [None]
  - PULMONARY EMBOLISM [None]
  - PLEURITIC PAIN [None]
  - HAEMOTHORAX [None]
